FAERS Safety Report 6551542-4 (Version None)
Quarter: 2010Q1

REPORT INFORMATION
  Report Type: 
  Country: None (occurrence: None)
  Receive Date: 20100126
  Receipt Date: 20100118
  Transmission Date: 20100710
  Serious: Yes (Death)
  Sender: FDA-Public Use
  Company Number: PHHY2009CA44671

PATIENT
  Sex: Male
  Weight: 72 kg

DRUGS (1)
  1. EXELON [Suspect]
     Dosage: UNK
     Route: 062
     Dates: start: 20090317, end: 20090325

REACTIONS (2)
  - AORTIC ANEURYSM [None]
  - SURGERY [None]
